FAERS Safety Report 11051943 (Version 1)
Quarter: 2015Q2

REPORT INFORMATION
  Report Type: Spontaneous
  Country: GR (occurrence: GR)
  Receive Date: 20150421
  Receipt Date: 20150421
  Transmission Date: 20150821
  Serious: Yes (Hospitalization)
  Sender: FDA-Public Use
  Company Number: GR-PFIZER INC-2015131673

PATIENT
  Age: 67 Year
  Sex: Female

DRUGS (2)
  1. PREZOLON [Suspect]
     Active Substance: PREDNISOLONE
     Dosage: 7.5 MG, DAILY (5 MG IN THE MORNING AND 2.5 MG [HALF OF 5 MG] IN THE NIGHT)
     Dates: start: 201504
  2. MEDROL [Suspect]
     Active Substance: METHYLPREDNISOLONE
     Dosage: 4 MG, DAILY (HALF IN THE MORNING, HALF IN THE NIGHT)
     Dates: start: 2009, end: 201504

REACTIONS (7)
  - Hair growth abnormal [Unknown]
  - Blood pressure increased [Unknown]
  - Blood glucose increased [Unknown]
  - Respiratory disorder [Unknown]
  - Visual impairment [Unknown]
  - Drug administration error [Unknown]
  - Chest pain [Unknown]

NARRATIVE: CASE EVENT DATE: 201504
